FAERS Safety Report 4278903-0 (Version None)
Quarter: 2004Q1

REPORT INFORMATION
  Report Type: 
  Country: None (occurrence: None)
  Receive Date: 20040122
  Receipt Date: 20040122
  Transmission Date: 20041129
  Serious: Yes (Hospitalization)
  Sender: FDA-Public Use
  Company Number: None

PATIENT
  Sex: Male

DRUGS (14)
  1. VALSARTAN 80 MG [Suspect]
     Indication: CARDIAC FAILURE CONGESTIVE
     Dosage: 80 MG DAILY ORAL
     Route: 048
     Dates: start: 20031121, end: 20031121
  2. ASPIRIN [Concomitant]
  3. CARVEDILOL [Concomitant]
  4. CLOPIDOGREL BISULFATE [Concomitant]
  5. FELODIPINE [Concomitant]
  6. FUROSEMIDE [Concomitant]
  7. ISOSORBIDE MONONITRATE [Concomitant]
  8. OXYCODONE AND ACETAMINOPHEN [Concomitant]
  9. PIROXICAM [Concomitant]
  10. PROMETHAZINE [Concomitant]
  11. RANITIDINE [Concomitant]
  12. SPIRONOLACTONE [Concomitant]
  13. TRAZODONE HCL [Concomitant]
  14. WARFARIN SODIUM [Concomitant]

REACTIONS (1)
  - HYPOTENSION [None]
